FAERS Safety Report 17036436 (Version 1)
Quarter: 2019Q4

REPORT INFORMATION
  Report Type: Spontaneous
  Country: US (occurrence: US)
  Receive Date: 20191114
  Receipt Date: 20191114
  Transmission Date: 20200122
  Serious: Yes (Disabling)
  Sender: FDA-Public Use
  Company Number: None

PATIENT
  Age: 32 Year
  Sex: Female
  Weight: 92.7 kg

DRUGS (8)
  1. TRIAMCINOLONE [Concomitant]
     Active Substance: TRIAMCINOLONE
  2. TYLENOL [Concomitant]
     Active Substance: ACETAMINOPHEN
  3. LAMINSIL [Concomitant]
  4. ATOTVASTATIN [Concomitant]
  5. COLACE [Concomitant]
     Active Substance: DOCUSATE SODIUM
  6. LEXAPRO [Concomitant]
     Active Substance: ESCITALOPRAM OXALATE
  7. LISINOPRIL. [Concomitant]
     Active Substance: LISINOPRIL
  8. ACETAMINOPHEN. [Suspect]
     Active Substance: ACETAMINOPHEN

REACTIONS (3)
  - Headache [None]
  - Product substitution issue [None]
  - Cerebral haemorrhage [None]

NARRATIVE: CASE EVENT DATE: 20191111
